FAERS Safety Report 23591322 (Version 2)
Quarter: 2024Q1

REPORT INFORMATION
  Report Type: Report from Study
  Country: JP (occurrence: JP)
  Receive Date: 20240304
  Receipt Date: 20240308
  Transmission Date: 20240410
  Serious: Yes (Hospitalization, Other)
  Sender: FDA-Public Use
  Company Number: JP-ONO-2024JP004277

PATIENT
  Age: 75 Year
  Sex: Male
  Weight: 60 kg

DRUGS (7)
  1. YERVOY [Suspect]
     Active Substance: IPILIMUMAB
     Indication: Non-small cell lung cancer recurrent
     Route: 041
     Dates: start: 20230629, end: 20230629
  2. OPDIVO [Suspect]
     Active Substance: NIVOLUMAB
     Indication: Non-small cell lung cancer recurrent
     Route: 041
     Dates: start: 20230629, end: 20230629
  3. CARBOPLATIN [Concomitant]
     Active Substance: CARBOPLATIN
     Indication: Non-small cell lung cancer recurrent
     Dosage: 380 MG
     Route: 041
     Dates: start: 20230629, end: 20230629
  4. PACLITAXEL [Concomitant]
     Active Substance: PACLITAXEL
     Indication: Non-small cell lung cancer recurrent
     Dosage: 320 MG
     Dates: start: 20230629, end: 20230629
  5. HYDROMORPHONE HYDROCHLORIDE [Concomitant]
     Active Substance: HYDROMORPHONE HYDROCHLORIDE
     Indication: Cancer pain
     Dosage: 2 MG, EVERYDAY AT 20:00
     Route: 048
     Dates: start: 20230620
  6. MIYA-BM [Concomitant]
     Active Substance: CLOSTRIDIUM BUTYRICUM SPORES STRAIN M-55
     Indication: Diarrhoea
     Dosage: 2 DF, Q8H AFTER MEAL?2 DOSAGE FORM
     Route: 048
     Dates: start: 20230620
  7. CELECOXIB [Concomitant]
     Active Substance: CELECOXIB
     Indication: Cancer pain
     Dosage: 100 MG, Q12H MORNING AND NIGHT
     Route: 048
     Dates: start: 20230620

REACTIONS (3)
  - Cytokine release syndrome [Recovering/Resolving]
  - Enterocolitis [Recovered/Resolved]
  - COVID-19 [Unknown]

NARRATIVE: CASE EVENT DATE: 20230701
